FAERS Safety Report 9924303 (Version 1)
Quarter: 2014Q1

REPORT INFORMATION
  Report Type: Report from Study
  Country: US (occurrence: US)
  Receive Date: 20140226
  Receipt Date: 20140226
  Transmission Date: 20141002
  Serious: Yes (Hospitalization, Other)
  Sender: FDA-Public Use
  Company Number: US-ROCHE-1334339

PATIENT
  Age: 55 Year
  Sex: Female

DRUGS (5)
  1. LUCENTIS [Suspect]
     Indication: AGE-RELATED MACULAR DEGENERATION
     Dosage: OU
     Route: 050
     Dates: start: 20110120
  2. LUCENTIS [Suspect]
     Indication: CHOROIDAL NEOVASCULARISATION
  3. AVASTIN [Suspect]
     Indication: PRODUCT USED FOR UNKNOWN INDICATION
     Route: 065
  4. ZYMAXID [Concomitant]
     Dosage: TID OU
     Route: 065
  5. METFORMIN [Concomitant]
     Route: 065

REACTIONS (19)
  - Cardiac failure congestive [Unknown]
  - Myocardial infarction [Unknown]
  - Eye discharge [Unknown]
  - Eye pain [Recovered/Resolved]
  - Headache [Unknown]
  - Metamorphopsia [Unknown]
  - Vitreous floaters [Unknown]
  - Photopsia [Unknown]
  - Diabetes mellitus [Unknown]
  - Vitreous detachment [Unknown]
  - Cataract nuclear [Unknown]
  - Visual impairment [Unknown]
  - Retinal detachment [Unknown]
  - Retinal disorder [Unknown]
  - Visual acuity reduced [Unknown]
  - Erythema [Unknown]
  - Ophthalmological examination abnormal [Unknown]
  - Fatigue [Unknown]
  - Blood glucose increased [Unknown]
